FAERS Safety Report 25290937 (Version 4)
Quarter: 2025Q3

REPORT INFORMATION
  Report Type: Spontaneous
  Country: US (occurrence: US)
  Receive Date: 20250510
  Receipt Date: 20250704
  Transmission Date: 20251021
  Serious: Yes (Hospitalization, Other)
  Sender: SANOFI AVENTIS
  Company Number: US-SA-2025SA118582

PATIENT
  Age: 51 Year
  Sex: Female

DRUGS (18)
  1. DUPIXENT [Suspect]
     Active Substance: DUPILUMAB
     Indication: Asthma
     Route: 058
     Dates: start: 20250416, end: 20250416
  2. DUPIXENT [Suspect]
     Active Substance: DUPILUMAB
     Dosage: 300 MG, QOW
     Route: 058
     Dates: start: 2025
  3. HYDROCORTISONE VALERATE [Concomitant]
     Active Substance: HYDROCORTISONE VALERATE
  4. ACRIVASTINE [Concomitant]
     Active Substance: ACRIVASTINE
  5. DILTIAZEM [Concomitant]
     Active Substance: DILTIAZEM
  6. BUSPIRONE [Concomitant]
     Active Substance: BUSPIRONE HYDROCHLORIDE
  7. TOPIRAMATE [Concomitant]
     Active Substance: TOPIRAMATE
  8. CLONAZEPAM [Concomitant]
     Active Substance: CLONAZEPAM
  9. DIGOXIN [Concomitant]
     Active Substance: DIGOXIN
  10. AMITRIPTYLINE [Concomitant]
     Active Substance: AMITRIPTYLINE
  11. MELATONIN [Concomitant]
     Active Substance: MELATONIN
  12. PRAVASTATIN [Concomitant]
     Active Substance: PRAVASTATIN
  13. SINGULAIR [Concomitant]
     Active Substance: MONTELUKAST SODIUM
  14. COMBIVENT RESPIMAT [Concomitant]
     Active Substance: ALBUTEROL SULFATE\IPRATROPIUM BROMIDE
  15. GABAPENTIN [Concomitant]
     Active Substance: GABAPENTIN
  16. DULERA [Concomitant]
     Active Substance: FORMOTEROL FUMARATE DIHYDRATE\MOMETASONE FUROATE
  17. ALBUTEROL [Concomitant]
     Active Substance: ALBUTEROL
  18. BUSPIRONE [Concomitant]
     Active Substance: BUSPIRONE HYDROCHLORIDE

REACTIONS (14)
  - Thrombosis [Recovered/Resolved]
  - Deep vein thrombosis [Unknown]
  - Intervertebral disc degeneration [Unknown]
  - Skin reaction [Unknown]
  - Neuralgia [Unknown]
  - Hypertension [Unknown]
  - Tachycardia [Unknown]
  - Dyspnoea [Unknown]
  - Back pain [Unknown]
  - Injection site pruritus [Recovered/Resolved]
  - Injection site erythema [Recovering/Resolving]
  - Injection site swelling [Recovering/Resolving]
  - Asthma [Unknown]
  - Arthralgia [Not Recovered/Not Resolved]

NARRATIVE: CASE EVENT DATE: 20250401
